FAERS Safety Report 15695128 (Version 1)
Quarter: 2018Q4

REPORT INFORMATION
  Report Type: Spontaneous
  Country: US (occurrence: US)
  Receive Date: 20181206
  Receipt Date: 20181206
  Transmission Date: 20190205
  Serious: No
  Sender: FDA-Public Use
  Company Number: US-ENDO PHARMACEUTICALS INC-2018-036033

PATIENT
  Sex: Male
  Weight: 81.63 kg

DRUGS (2)
  1. XIAFLEX [Suspect]
     Active Substance: COLLAGENASE CLOSTRIDIUM HISTOLYTICUM
     Dosage: SECOND CYCLE; INJECTIONS 1 AND 2
     Route: 026
     Dates: start: 201804
  2. XIAFLEX [Suspect]
     Active Substance: COLLAGENASE CLOSTRIDIUM HISTOLYTICUM
     Indication: PEYRONIE^S DISEASE
     Dosage: FIRST CYCLE; INJECTIONS 1 AND 2
     Route: 026
     Dates: start: 201801

REACTIONS (6)
  - Penile contusion [Unknown]
  - Penile pain [Unknown]
  - Inappropriate schedule of product administration [Unknown]
  - Penile swelling [Unknown]
  - Drug ineffective [Unknown]
  - Drug effect decreased [Unknown]

NARRATIVE: CASE EVENT DATE: 2018
